FAERS Safety Report 8516151-6 (Version None)
Quarter: 2012Q3

REPORT INFORMATION
  Report Type: 
  Country: None (occurrence: None)
  Receive Date: 20120717
  Receipt Date: 20120712
  Transmission Date: 20120928
  Serious: Yes (Death, Other)
  Sender: FDA-Public Use
  Company Number: CN-BAYER-2012-069611

PATIENT
  Age: 55 Year
  Sex: Female

DRUGS (4)
  1. DIHYDROXYPROPYLTHEOPHYLLINE [Suspect]
  2. ASPIRIN [Suspect]
  3. TONGXINLUO [Suspect]
  4. CEFAZOLIN SODIUM [Suspect]

REACTIONS (2)
  - LOSS OF CONSCIOUSNESS [None]
  - SUDDEN DEATH [None]
